FAERS Safety Report 8398367-5 (Version None)
Quarter: 2012Q2

REPORT INFORMATION
  Report Type: 
  Country: None (occurrence: None)
  Receive Date: 20120531
  Receipt Date: 20120524
  Transmission Date: 20120825
  Serious: Yes (Other)
  Sender: FDA-Public Use
  Company Number: ZA-JNJFOC-20120517655

PATIENT
  Sex: Female
  Weight: 58 kg

DRUGS (2)
  1. EUTHYROX [Concomitant]
     Indication: THYROID DISORDER
     Route: 065
  2. NICORETTE [Suspect]
     Indication: SMOKING CESSATION THERAPY
     Route: 002
     Dates: start: 20060101

REACTIONS (5)
  - OVERDOSE [None]
  - CHEST PAIN [None]
  - DYSPNOEA [None]
  - NICOTINE DEPENDENCE [None]
  - INCORRECT DRUG ADMINISTRATION DURATION [None]
